FAERS Safety Report 5222414-2 (Version None)
Quarter: 2007Q1

REPORT INFORMATION
  Report Type: 
  Country: None (occurrence: None)
  Receive Date: 20070129
  Receipt Date: 20060918
  Transmission Date: 20070707
  Serious: No
  Sender: FDA-Public Use
  Company Number: US-BRISTOL-MYERS SQUIBB COMPANY-13512314

PATIENT
  Age: 66 Year
  Sex: Female

DRUGS (1)
  1. DESYREL [Suspect]
     Indication: DEPRESSION
     Dates: start: 19960101

REACTIONS (2)
  - NAUSEA [None]
  - THROAT TIGHTNESS [None]
